FAERS Safety Report 7054647-7 (Version None)
Quarter: 2010Q4

REPORT INFORMATION
  Report Type: 
  Country: None (occurrence: None)
  Receive Date: 20101020
  Receipt Date: 20101015
  Transmission Date: 20110411
  Serious: Yes (Life-Threatening, Hospitalization, Other)
  Sender: FDA-Public Use
  Company Number: US-MERCK-1010USA01853

PATIENT
  Age: 14 Year
  Sex: Male
  Weight: 71 kg

DRUGS (7)
  1. SINGULAIR [Suspect]
     Indication: ASTHMA
     Route: 048
     Dates: start: 20070101, end: 20090801
  2. SINGULAIR [Suspect]
     Route: 048
     Dates: start: 20090801, end: 20100801
  3. ALBUTEROL [Concomitant]
     Route: 065
  4. VENTOLIN [Concomitant]
     Route: 065
  5. FLOVENT [Concomitant]
     Route: 065
  6. ADVAIR DISKUS 100/50 [Concomitant]
     Route: 065
  7. PREDNISONE [Concomitant]
     Route: 048

REACTIONS (3)
  - DEPRESSION [None]
  - SUICIDAL IDEATION [None]
  - THINKING ABNORMAL [None]
